FAERS Safety Report 6785502-5 (Version None)
Quarter: 2010Q2

REPORT INFORMATION
  Report Type: 
  Country: None (occurrence: None)
  Receive Date: 20100621
  Receipt Date: 20100621
  Transmission Date: 20101027
  Serious: Yes (Death, Hospitalization)
  Sender: FDA-Public Use
  Company Number: None

PATIENT
  Age: 66 Year
  Sex: Male
  Weight: 84.6 kg

DRUGS (8)
  1. REVLIMID [Suspect]
     Indication: MULTIPLE MYELOMA
     Dosage: CHRONIC SINCE 5/09
     Dates: start: 20090501
  2. COUMADIN [Concomitant]
  3. PYRIDOXINE HCL [Concomitant]
  4. OMEPRAZOLE [Concomitant]
  5. COMBIVENT [Concomitant]
  6. INSULIN [Concomitant]
  7. VALACYCLOVIR [Concomitant]
  8. NEURONTIN [Concomitant]

REACTIONS (5)
  - DRUG TOXICITY [None]
  - ESCHERICHIA SEPSIS [None]
  - HYPOTENSION [None]
  - MULTIPLE MYELOMA [None]
  - PULMONARY TOXICITY [None]
